FAERS Safety Report 16360603 (Version 2)
Quarter: 2020Q1

REPORT INFORMATION
  Report Type: Other
  Country: US (occurrence: US)
  Receive Date: 20190528
  Receipt Date: 20200207
  Transmission Date: 20200409
  Serious: No
  Sender: FDA-Public Use
  Company Number: US-AMAG PHARMACEUTICALS, INC.-AMAG201902302

PATIENT
  Age: 20 Year
  Sex: Female

DRUGS (5)
  1. SLEEP AID [Concomitant]
     Indication: NAUSEA
     Dosage: 1/2 TAB BY MOUTH, 3X/DAY FOR NAUSEA
     Dates: start: 20190107
  2. ZITHROMAX [Concomitant]
     Active Substance: AZITHROMYCIN DIHYDRATE
     Indication: PRODUCT USED FOR UNKNOWN INDICATION
     Dosage: TAKE 4 TABLETS AS ONE DOSE BY MOUTH TOGETHER
     Dates: start: 20190110
  3. PRENATAL VITAMINS [Concomitant]
     Active Substance: VITAMINS
     Indication: VITAMIN SUPPLEMENTATION
     Dosage: TAKE 1 TABLET BY MOUTH DAILY
     Dates: start: 20190213
  4. PYRIDOXINE HCL [Concomitant]
     Active Substance: PYRIDOXINE HYDROCHLORIDE
     Indication: NAUSEA
     Dosage: 1 TAB BY MOUTH 3X/DAY
     Dates: start: 20190107
  5. MAKENA [Suspect]
     Active Substance: HYDROXYPROGESTERONE CAPROATE
     Indication: PREMATURE DELIVERY
     Dosage: 250MG/ML, WEEKLY
     Route: 058
     Dates: start: 20190308, end: 20190418

REACTIONS (6)
  - Injection site urticaria [Not Recovered/Not Resolved]
  - Product dose omission [Unknown]
  - Malaise [Unknown]
  - Injection site swelling [Unknown]
  - Injection site nodule [Not Recovered/Not Resolved]
  - Injection site pruritus [Unknown]

NARRATIVE: CASE EVENT DATE: 201904
